FAERS Safety Report 23749067 (Version 2)
Quarter: 2024Q2

REPORT INFORMATION
  Report Type: Spontaneous
  Country: JP (occurrence: None)
  Receive Date: 20240416
  Receipt Date: 20240425
  Transmission Date: 20240715
  Serious: Yes (Other)
  Sender: FDA-Public Use
  Company Number: 2024A087796

PATIENT
  Age: 59 Year
  Sex: Female

DRUGS (5)
  1. FASLODEX [Suspect]
     Active Substance: FULVESTRANT
     Indication: Breast cancer female
     Dosage: DOSE UNKNOWN
     Route: 030
     Dates: start: 20221212
  2. IBRANCE [Suspect]
     Active Substance: PALBOCICLIB
     Dosage: NUMBER OF SEPARATE DOSAGES UNKNOWN, ORAL ADMINISTRATION FOR THREE WEEKS AND CESSATION FOR ONE WEEK
     Dates: start: 20221213
  3. CALCIUM ASPARTATE [Concomitant]
     Active Substance: CALCIUM ASPARTATE
     Dosage: DOSE UNKNOWN
  4. ALFAROL [Concomitant]
     Active Substance: ALFACALCIDOL
     Dosage: DOSE UNKNOWN
     Route: 065
  5. DENOSUMAB [Concomitant]
     Active Substance: DENOSUMAB
     Dosage: DOSE UNKNOWN
     Dates: start: 20221212

REACTIONS (11)
  - Myelosuppression [Unknown]
  - Dizziness [Unknown]
  - Rash pruritic [Unknown]
  - Oedema [Unknown]
  - Sleep disorder due to a general medical condition [Unknown]
  - Cough [Recovered/Resolved]
  - Decreased appetite [Unknown]
  - Nausea [Unknown]
  - Fatigue [Unknown]
  - Hypoaesthesia [Recovered/Resolved]
  - Hepatic enzyme increased [Unknown]

NARRATIVE: CASE EVENT DATE: 20221201
